FAERS Safety Report 20365671 (Version 1)
Quarter: 2022Q1

REPORT INFORMATION
  Report Type: Spontaneous
  Country: US (occurrence: US)
  Receive Date: 20220123
  Receipt Date: 20220123
  Transmission Date: 20220423
  Serious: No
  Sender: FDA-Public Use
  Company Number: US-JNJFOC-20220126982

PATIENT
  Age: 5 Year
  Sex: Male

DRUGS (2)
  1. RISPERDAL [Suspect]
     Active Substance: RISPERIDONE
     Indication: Product used for unknown indication
     Dosage: GIVEN 0.25 HALF TABLET
     Route: 048
     Dates: end: 200909
  2. RISPERDAL [Suspect]
     Active Substance: RISPERIDONE
     Dosage: THERAPY START DATE: 21/SEP/2009
     Route: 048

REACTIONS (5)
  - Somnolence [Unknown]
  - Irritability [Unknown]
  - Nightmare [Unknown]
  - Off label use [Unknown]
  - Wrong technique in product usage process [Unknown]

NARRATIVE: CASE EVENT DATE: 20090916
